FAERS Safety Report 8314025-7 (Version None)
Quarter: 2012Q2

REPORT INFORMATION
  Report Type: 
  Country: None (occurrence: None)
  Receive Date: 20120426
  Receipt Date: 20120417
  Transmission Date: 20120825
  Serious: Yes (Other)
  Sender: FDA-Public Use
  Company Number: US-CELGENEUS-163-20785-12041977

PATIENT
  Sex: Male

DRUGS (4)
  1. THALOMID [Suspect]
     Indication: MULTIPLE MYELOMA
     Dosage: 100 MILLIGRAM
     Route: 048
     Dates: start: 20030701
  2. THALOMID [Suspect]
     Dosage: 150MG TO 300 MG
     Route: 048
     Dates: start: 20031101
  3. THALOMID [Suspect]
     Dosage: 50MG-150MG
     Route: 048
     Dates: start: 20050101
  4. THALOMID [Suspect]
     Dosage: 100 MILLIGRAM
     Route: 048
     Dates: start: 20090301, end: 20120101

REACTIONS (2)
  - CARDIAC DISORDER [None]
  - MULTIPLE MYELOMA [None]
